FAERS Safety Report 4979689-4 (Version None)
Quarter: 2006Q2

REPORT INFORMATION
  Report Type: 
  Country: None (occurrence: None)
  Receive Date: 20060418
  Receipt Date: 20060411
  Transmission Date: 20061013
  Serious: Yes (Hospitalization, Other)
  Sender: FDA-Public Use
  Company Number: 200610168BVD

PATIENT
  Age: 57 Year
  Sex: Male

DRUGS (2)
  1. TRASYLOL [Suspect]
     Indication: CORONARY ARTERY SURGERY
     Dosage: 7250000 IU, TOTAL DAILY
     Dates: start: 19960506
  2. PLAVIX [Concomitant]

REACTIONS (11)
  - ASYMPTOMATIC GENE CARRIER [None]
  - BALANCE DISORDER [None]
  - CEREBRAL ISCHAEMIA [None]
  - CEREBROVASCULAR ACCIDENT [None]
  - CORONARY ARTERY STENOSIS [None]
  - CORONARY ARTERY THROMBOSIS [None]
  - LABILE HYPERTENSION [None]
  - MONOPLEGIA [None]
  - NERVOUS SYSTEM DISORDER [None]
  - VERTIGO [None]
  - VOMITING [None]
